FAERS Safety Report 18161226 (Version 2)
Quarter: 2020Q3

REPORT INFORMATION
  Report Type: Spontaneous
  Country: US (occurrence: US)
  Receive Date: 20200818
  Receipt Date: 20200911
  Transmission Date: 20201103
  Serious: Yes (Other)
  Sender: FDA-Public Use
  Company Number: US-BAYER-2020-171714

PATIENT
  Age: 20 Year
  Sex: Female
  Weight: 59.41 kg

DRUGS (1)
  1. MIRENA [Suspect]
     Active Substance: LEVONORGESTREL
     Indication: CONTRACEPTION
     Dosage: 20?G PER DAY, CONTINUOUSLY
     Route: 015
     Dates: start: 20200812, end: 20200812

REACTIONS (3)
  - Embedded device [Recovered/Resolved]
  - Procedural pain [Recovered/Resolved]
  - Device difficult to use [None]

NARRATIVE: CASE EVENT DATE: 20200812
